FAERS Safety Report 9011937 (Version 2)
Quarter: 2013Q1

REPORT INFORMATION
  Report Type: Report from Study
  Country: JP (occurrence: JP)
  Receive Date: 20130107
  Receipt Date: 20130208
  Transmission Date: 20140127
  Serious: Yes (Other)
  Sender: FDA-Public Use
  Company Number: JP-ROCHE-1174980

PATIENT
  Sex: Male
  Weight: 61 kg

DRUGS (8)
  1. METHOXY POLYETHYLENE GLYCOL-EPOETIN BETA [Suspect]
     Indication: NEPHROGENIC ANAEMIA
     Route: 042
     Dates: start: 20110919, end: 20111017
  2. METHOXY POLYETHYLENE GLYCOL-EPOETIN BETA [Suspect]
     Indication: NEPHROGENIC ANAEMIA
     Route: 042
     Dates: start: 20111114, end: 20120206
  3. METHOXY POLYETHYLENE GLYCOL-EPOETIN BETA [Suspect]
     Indication: NEPHROGENIC ANAEMIA
     Route: 042
     Dates: start: 20120305, end: 20120402
  4. BLOPRESS [Concomitant]
     Indication: HYPERTENSION
     Route: 048
  5. GASPORT-D [Concomitant]
     Route: 048
  6. FOSRENOL [Concomitant]
     Route: 048
     Dates: start: 20110622
  7. CALTAN [Concomitant]
     Route: 048
  8. RENAGEL [Concomitant]
     Route: 048
     Dates: start: 20110326

REACTIONS (1)
  - Anaemia [Unknown]
